FAERS Safety Report 10343863 (Version 2)
Quarter: 2014Q4

REPORT INFORMATION
  Report Type: Spontaneous
  Country: JP (occurrence: JP)
  Receive Date: 20140726
  Receipt Date: 20141027
  Transmission Date: 20150528
  Serious: Yes (Death, Other)
  Sender: FDA-Public Use
  Company Number: PHHY2013JP158774

PATIENT
  Sex: Male

DRUGS (2)
  1. GLIVEC [Suspect]
     Active Substance: IMATINIB MESYLATE
     Indication: GASTROINTESTINAL STROMAL TUMOUR
     Route: 065
     Dates: start: 200801
  2. GLIVEC [Suspect]
     Active Substance: IMATINIB MESYLATE
     Dosage: 300 MG, UNK
     Dates: start: 201105

REACTIONS (4)
  - Recurrent cancer [Unknown]
  - Gastrointestinal stromal tumour [Unknown]
  - Oedema [Unknown]
  - Fall [Fatal]

NARRATIVE: CASE EVENT DATE: 200805
